FAERS Safety Report 10172885 (Version 2)
Quarter: 2014Q2

REPORT INFORMATION
  Report Type: Spontaneous
  Country: IL (occurrence: IL)
  Receive Date: 20140515
  Receipt Date: 20140519
  Transmission Date: 20141212
  Serious: Yes (Hospitalization)
  Sender: FDA-Public Use
  Company Number: IL-ROCHE-1401976

PATIENT
  Age: 43 Year
  Sex: Female

DRUGS (3)
  1. MABTHERA [Suspect]
     Indication: SLE ARTHRITIS
     Route: 042
     Dates: start: 201404
  2. MABTHERA [Suspect]
     Indication: RHEUMATOID ARTHRITIS
  3. COUMADIN [Suspect]
     Indication: ANTIPHOSPHOLIPID SYNDROME
     Route: 065

REACTIONS (5)
  - Infusion related reaction [Recovered/Resolved]
  - Blood urine present [Recovered/Resolved]
  - Thrombocytopenia [Recovered/Resolved]
  - Off label use [Unknown]
  - Haemorrhage [Recovered/Resolved]
